FAERS Safety Report 4513347-5 (Version None)
Quarter: 2004Q4

REPORT INFORMATION
  Report Type: 
  Country: None (occurrence: None)
  Receive Date: 20041130
  Receipt Date: 20040819
  Transmission Date: 20050328
  Serious: No
  Sender: FDA-Public Use
  Company Number: US-BRISTOL-MYERS SQUIBB COMPANY-12677001

PATIENT
  Age: 73 Year
  Sex: Male
  Weight: 80 kg

DRUGS (6)
  1. ERBITUX [Suspect]
     Indication: COLON CANCER METASTATIC
     Dosage: ADD. THERAPY DATES: 12-AUG, 19-AUG, 26-AUG, 02-SEP, 09-SEP, 16-SEP (2004)
     Route: 042
     Dates: start: 20040805, end: 20040805
  2. CAMPTOSAR [Suspect]
  3. XELODA [Suspect]
  4. BENADRYL [Concomitant]
     Indication: PREMEDICATION
     Route: 042
     Dates: start: 20040805, end: 20040805
  5. PROCRIT [Concomitant]
  6. POTASSIUM CHLORIDE [Concomitant]

REACTIONS (2)
  - DIARRHOEA [None]
  - DRY MOUTH [None]
